FAERS Safety Report 19108295 (Version 2)
Quarter: 2021Q2

REPORT INFORMATION
  Report Type: Spontaneous
  Country: FR (occurrence: FR)
  Receive Date: 20210408
  Receipt Date: 20210415
  Transmission Date: 20210717
  Serious: Yes (Other)
  Sender: FDA-Public Use
  Company Number: FR-STRIDES ARCOLAB LIMITED-2021SP003937

PATIENT
  Age: 39 Month
  Sex: Female

DRUGS (12)
  1. PREDNISOLONE. [Suspect]
     Active Substance: PREDNISOLONE
     Dosage: UNK, GRADUALLY TAPERED
     Route: 065
  2. PREDNISOLONE. [Suspect]
     Active Substance: PREDNISOLONE
     Dosage: 1 MILLIGRAM/KILOGRAM, PER DAY, GRADUALLY TAPERED
     Route: 065
  3. INDOMETACIN [Concomitant]
     Active Substance: INDOMETHACIN
     Indication: STILL^S DISEASE
     Dosage: 25 MILLIGRAM, PER DAY
     Route: 065
  4. METHYLPREDNISOLONE. [Suspect]
     Active Substance: METHYLPREDNISOLONE
     Indication: STILL^S DISEASE
     Dosage: UNK
     Route: 065
  5. TOCILIZUMAB. [Concomitant]
     Active Substance: TOCILIZUMAB
     Indication: STILL^S DISEASE
     Dosage: UNK
     Route: 065
  6. METHOTREXATE. [Concomitant]
     Active Substance: METHOTREXATE
     Indication: STILL^S DISEASE
     Dosage: 5 MILLIGRAM, 1 WEEK
     Route: 065
  7. PREDNISOLONE. [Suspect]
     Active Substance: PREDNISOLONE
     Indication: STILL^S DISEASE
     Dosage: 2 MILLIGRAM/KILOGRAM, PER DAY
     Route: 065
  8. ANAKINRA [Concomitant]
     Active Substance: ANAKINRA
     Indication: STILL^S DISEASE
     Dosage: UNK
     Route: 065
  9. ADALIMUMAB [Concomitant]
     Active Substance: ADALIMUMAB
     Indication: STILL^S DISEASE
     Dosage: UNK
     Route: 065
  10. THALIDOMIDE [Concomitant]
     Active Substance: THALIDOMIDE
     Indication: STILL^S DISEASE
     Dosage: 50 MILLIGRAM, PER DAY
     Route: 065
  11. INFLIXIMAB [Concomitant]
     Active Substance: INFLIXIMAB
     Indication: STILL^S DISEASE
     Dosage: 75 MILLIGRAM, 4 WEEKS
     Route: 065
  12. CANAKINUMAB. [Concomitant]
     Active Substance: CANAKINUMAB
     Indication: STILL^S DISEASE
     Dosage: UNK
     Route: 065

REACTIONS (12)
  - Osteopenia [Unknown]
  - Toxicity to various agents [Unknown]
  - Cellulitis staphylococcal [Unknown]
  - Arthritis [Unknown]
  - Hypertension [Unknown]
  - Cushing^s syndrome [Unknown]
  - Growth retardation [Recovered/Resolved]
  - Steroid dependence [Unknown]
  - Adrenal insufficiency [Unknown]
  - Varicella zoster virus infection [Unknown]
  - Actinomycotic sepsis [Unknown]
  - Clostridium difficile colitis [Unknown]
